FAERS Safety Report 6163392-1 (Version None)
Quarter: 2009Q2

REPORT INFORMATION
  Report Type: 
  Country: None (occurrence: None)
  Receive Date: 20090422
  Receipt Date: 20090414
  Transmission Date: 20091009
  Serious: Yes (Hospitalization, Other)
  Sender: FDA-Public Use
  Company Number: PHHY2009GB10594

PATIENT
  Sex: Female

DRUGS (5)
  1. CLOZARIL [Suspect]
     Indication: SCHIZOPHRENIA
     Dosage: 600 MG DAILY
     Dates: start: 20070509
  2. CLOZARIL [Suspect]
     Dosage: 100 MG DAILY
  3. EPILIM [Concomitant]
     Indication: EPILEPSY
     Dosage: 300 MG DAILY
     Route: 048
     Dates: start: 20090209
  4. HYOSCINE HBR HYT [Concomitant]
     Indication: SALIVARY HYPERSECRETION
     Dosage: 0.9 MG
     Route: 058
  5. AMISULPRIDE [Concomitant]
     Indication: SALIVARY HYPERSECRETION
     Dosage: 300 MG DAILY
     Route: 048
     Dates: start: 20090127

REACTIONS (8)
  - ANTIPSYCHOTIC DRUG LEVEL INCREASED [None]
  - CONVULSION [None]
  - DECREASED APPETITE [None]
  - DEHYDRATION [None]
  - EYE DISORDER [None]
  - LIVER DISORDER [None]
  - NAUSEA [None]
  - VOMITING [None]
